FAERS Safety Report 7435326-0 (Version None)
Quarter: 2011Q2

REPORT INFORMATION
  Report Type: 
  Country: None (occurrence: None)
  Receive Date: 20110425
  Receipt Date: 20110419
  Transmission Date: 20111010
  Serious: Yes (Hospitalization)
  Sender: FDA-Public Use
  Company Number: A0877040A

PATIENT
  Sex: Male
  Weight: 89.1 kg

DRUGS (8)
  1. ASPIRIN [Concomitant]
  2. LIPITOR [Concomitant]
  3. METFORMIN [Concomitant]
  4. LASIX [Concomitant]
  5. AVANDAMET [Suspect]
     Route: 048
     Dates: start: 20041201, end: 20050301
  6. LISINOPRIL [Concomitant]
  7. AVANDIA [Suspect]
     Dosage: 4MG TWICE PER DAY
     Route: 048
     Dates: start: 20050301, end: 20070301
  8. COREG [Concomitant]

REACTIONS (6)
  - CARDIAC ARREST [None]
  - CARDIAC FAILURE CONGESTIVE [None]
  - MYOCARDIAL INFARCTION [None]
  - ATRIAL FIBRILLATION [None]
  - SICK SINUS SYNDROME [None]
  - CORONARY ARTERY DISEASE [None]
